FAERS Safety Report 21566314 (Version 1)
Quarter: 2022Q4

REPORT INFORMATION
  Report Type: Spontaneous
  Country: US (occurrence: US)
  Receive Date: 20221108
  Receipt Date: 20221108
  Transmission Date: 20230113
  Serious: No
  Sender: FDA-Public Use
  Company Number: US-PFIZER INC-202201277769

PATIENT
  Age: 40 Year
  Sex: Male

DRUGS (2)
  1. PAXLOVID [Suspect]
     Active Substance: NIRMATRELVIR\RITONAVIR
     Indication: COVID-19 treatment
     Dosage: UNK
     Dates: start: 20221101, end: 20221103
  2. BUPRENORPHINE [Concomitant]
     Active Substance: BUPRENORPHINE
     Dosage: UNK
     Dates: start: 20221001

REACTIONS (8)
  - Incorrect product administration duration [Unknown]
  - Anorectal disorder [Unknown]
  - Proctalgia [Unknown]
  - Epistaxis [Unknown]
  - Diarrhoea [Unknown]
  - Abdominal pain [Unknown]
  - Feeling hot [Unknown]
  - Hyperhidrosis [Unknown]

NARRATIVE: CASE EVENT DATE: 20221103
